FAERS Safety Report 4404049-4 (Version None)
Quarter: 2004Q2

REPORT INFORMATION
  Report Type: 
  Country: None (occurrence: None)
  Receive Date: 20040618
  Receipt Date: 20040406
  Transmission Date: 20050107
  Serious: No
  Sender: FDA-Public Use
  Company Number: US-JNJFOC-20040201960

PATIENT
  Age: 33 Year
  Sex: Female
  Weight: 67.1324 kg

DRUGS (3)
  1. ORTHO EVRA [Suspect]
     Indication: CONTRACEPTION
     Dosage: 1 DOSE(S), 3 IN 4 WEEK, TRANSDERMAL
     Route: 062
     Dates: start: 20030301
  2. CONTACT CAPSULES (CHLORHEXIDINE HYDROCHLORIDE) [Concomitant]
  3. PHENERGAN SUPPOSITORY (PROMETHAZINE HYDROCHLORIDE) [Concomitant]

REACTIONS (2)
  - INFLUENZA [None]
  - VAGINAL HAEMORRHAGE [None]
